FAERS Safety Report 16303522 (Version 1)
Quarter: 2019Q2

REPORT INFORMATION
  Report Type: Spontaneous
  Country: US (occurrence: US)
  Receive Date: 20190405
  Receipt Date: 20190405
  Transmission Date: 20190711
  Serious: No
  Sender: FDA-Public Use
  Company Number: None

PATIENT
  Age: 94 Year
  Sex: Female
  Weight: 53.07 kg

DRUGS (7)
  1. AMLODIPONE [Concomitant]
  2. CALCIUM WITH VITAMIN D [Suspect]
     Active Substance: CALCIUM\VITAMIN D
  3. LOSARTAN 100MG FOR COZAAR [Suspect]
     Active Substance: LOSARTAN POTASSIUM
     Dosage: ?          QUANTITY:1 PILL;?
     Route: 048
  4. COLECOXIB [Concomitant]
  5. ALLOPURINOL. [Concomitant]
     Active Substance: ALLOPURINOL
  6. CARVEDILOL. [Concomitant]
     Active Substance: CARVEDILOL
  7. PROBIOTIC [Concomitant]
     Active Substance: PROBIOTICS NOS

REACTIONS (2)
  - Mobility decreased [None]
  - Muscle spasms [None]

NARRATIVE: CASE EVENT DATE: 20190318
